FAERS Safety Report 6889621-4 (Version None)
Quarter: 2010Q3

REPORT INFORMATION
  Report Type: 
  Country: None (occurrence: None)
  Receive Date: 20100730
  Receipt Date: 20080329
  Transmission Date: 20110219
  Serious: No
  Sender: FDA-Public Use
  Company Number: US-PFIZER INC-2008028529

PATIENT
  Sex: Female
  Weight: 67.272 kg

DRUGS (2)
  1. LIPITOR [Suspect]
     Indication: BLOOD CHOLESTEROL INCREASED
     Dates: start: 20080121
  2. ACETYLSALICYLIC ACID SRT [Concomitant]

REACTIONS (5)
  - EYE PAIN [None]
  - FOREIGN BODY SENSATION IN EYES [None]
  - HEADACHE [None]
  - MUSCLE SPASMS [None]
  - NECK PAIN [None]
